FAERS Safety Report 10469953 (Version 1)
Quarter: 2014Q3

REPORT INFORMATION
  Report Type: Spontaneous
  Country: US (occurrence: US)
  Receive Date: 20140923
  Receipt Date: 20140923
  Transmission Date: 20150326
  Serious: No
  Sender: FDA-Public Use
  Company Number: US-SHIONOGI, INC-2014000653

PATIENT
  Age: 64 Year
  Sex: Female

DRUGS (4)
  1. OSPHENA [Suspect]
     Active Substance: OSPEMIFENE
     Indication: VULVOVAGINAL DRYNESS
     Dosage: UNK
     Dates: start: 201401, end: 201403
  2. LIPITOR [Concomitant]
     Active Substance: ATORVASTATIN CALCIUM
     Dosage: UNK
     Route: 065
  3. CLOTRIMAZOLE AND BETAMETHASONE [Concomitant]
     Indication: BACTERIAL INFECTION
     Dosage: AS NEEDED
     Route: 061
     Dates: start: 2014
  4. OSPHENA [Suspect]
     Active Substance: OSPEMIFENE
     Indication: OFF LABEL USE
     Dosage: UNK
     Dates: start: 201405

REACTIONS (4)
  - Off label use [Unknown]
  - Bacterial infection [Unknown]
  - Constipation [Unknown]
  - Vulvovaginal discomfort [Unknown]

NARRATIVE: CASE EVENT DATE: 2014
